FAERS Safety Report 12878930 (Version 1)
Quarter: 2016Q4

REPORT INFORMATION
  Report Type: Report from Study
  Country: GB (occurrence: GB)
  Receive Date: 20161024
  Receipt Date: 20161024
  Transmission Date: 20170207
  Serious: Yes (Hospitalization)
  Sender: FDA-Public Use
  Company Number: GB-GILEAD-2016-0239213

PATIENT
  Sex: Male

DRUGS (4)
  1. MANNITOL. [Suspect]
     Active Substance: MANNITOL
     Indication: CYSTIC FIBROSIS
     Dosage: 400 MG, UNK
     Route: 055
     Dates: start: 201206
  2. DORNASE ALFA [Concomitant]
     Active Substance: DORNASE ALFA
  3. TOBI [Suspect]
     Active Substance: TOBRAMYCIN
     Indication: CYSTIC FIBROSIS
     Dosage: 112 MG, UNK
     Route: 055
     Dates: start: 201206
  4. AZTREONAM LYSINE [Suspect]
     Active Substance: AZTREONAM LYSINE
     Indication: CYSTIC FIBROSIS
     Dosage: 75 MG, UNK
     Route: 055
     Dates: start: 201206, end: 20151016

REACTIONS (1)
  - Drug administration error [Unknown]
